FAERS Safety Report 10500748 (Version 1)
Quarter: 2014Q4

REPORT INFORMATION
  Report Type: Spontaneous
  Country: US (occurrence: US)
  Receive Date: 20141007
  Receipt Date: 20141007
  Transmission Date: 20150528
  Serious: Yes (Other)
  Sender: FDA-Public Use
  Company Number: US-ROCHE-1470420

PATIENT
  Sex: Female

DRUGS (1)
  1. TAMIFLU [Suspect]
     Active Substance: OSELTAMIVIR PHOSPHATE
     Indication: INFLUENZA
     Dosage: 1.5 TEASPOON DAILY
     Route: 048
     Dates: start: 20140918

REACTIONS (6)
  - Headache [Recovering/Resolving]
  - Lethargy [Unknown]
  - Hypersomnia [Unknown]
  - Cough [Recovering/Resolving]
  - Dysgeusia [Unknown]
  - Hypophagia [Recovering/Resolving]
